FAERS Safety Report 8473554-6 (Version None)
Quarter: 2012Q2

REPORT INFORMATION
  Report Type: 
  Country: None (occurrence: None)
  Receive Date: 20120628
  Receipt Date: 20110725
  Transmission Date: 20120825
  Serious: Yes (Other)
  Sender: FDA-Public Use
  Company Number: US-MYLANLABS-2011S1010508

PATIENT
  Age: 16 Year
  Sex: Male

DRUGS (3)
  1. CLOZAPINE [Suspect]
     Route: 048
     Dates: end: 20110701
  2. DEPAKOTE [Concomitant]
  3. COGENTIN [Concomitant]

REACTIONS (1)
  - GRANULOCYTOPENIA [None]
